FAERS Safety Report 7713028-0 (Version None)
Quarter: 2011Q3

REPORT INFORMATION
  Report Type: 
  Country: None (occurrence: None)
  Receive Date: 20110826
  Receipt Date: 20110816
  Transmission Date: 20111222
  Serious: Yes (Hospitalization, Other)
  Sender: FDA-Public Use
  Company Number: FR-VERTEX PHARMACEUTICALS INC.-AE-2011-000080

PATIENT
  Sex: Male
  Weight: 91 kg

DRUGS (8)
  1. EPOGEN [Concomitant]
     Indication: ANAEMIA
  2. BISOPROLOL FUMARATE [Concomitant]
     Indication: MYOCARDIAL ISCHAEMIA
  3. RAMIPRIL [Concomitant]
     Indication: MYOCARDIAL ISCHAEMIA
  4. VX-950 [Suspect]
     Indication: HEPATITIS C
     Route: 048
     Dates: start: 20110304, end: 20110320
  5. PEGINTERFERON ALFA-2A [Concomitant]
     Indication: HEPATITIS C
     Route: 058
  6. LERCANIDIPINE [Concomitant]
     Indication: MYOCARDIAL ISCHAEMIA
  7. PLAVIX [Concomitant]
     Indication: MYOCARDIAL ISCHAEMIA
  8. RIBAVIRINE [Concomitant]
     Indication: HEPATITIS C
     Route: 048

REACTIONS (6)
  - LUNG INFECTION [None]
  - ANAEMIA [None]
  - RENAL IMPAIRMENT [None]
  - NEUTROPENIA [None]
  - RASH [None]
  - BLOOD CREATININE INCREASED [None]
